FAERS Safety Report 8572924-5 (Version None)
Quarter: 2012Q3

REPORT INFORMATION
  Report Type: 
  Country: None (occurrence: None)
  Receive Date: 20120806
  Receipt Date: 20120726
  Transmission Date: 20120928
  Serious: Yes (Other)
  Sender: FDA-Public Use
  Company Number: CN-ASTRAZENECA-2012SE54431

PATIENT
  Sex: Male
  Weight: 55 kg

DRUGS (1)
  1. CRESTOR [Suspect]
     Indication: CEREBRAL INFARCTION
     Route: 048
     Dates: start: 20090113, end: 20090122

REACTIONS (1)
  - HEPATIC FUNCTION ABNORMAL [None]
